FAERS Safety Report 6206306-8 (Version None)
Quarter: 2009Q2

REPORT INFORMATION
  Report Type: 
  Country: None (occurrence: None)
  Receive Date: 20090528
  Receipt Date: 20090518
  Transmission Date: 20091009
  Serious: Yes (Other)
  Sender: FDA-Public Use
  Company Number: JP-BAYER-200911581BYL

PATIENT
  Age: 49 Year
  Sex: Male
  Weight: 52 kg

DRUGS (8)
  1. FLUDARA [Suspect]
     Indication: ACUTE MYELOID LEUKAEMIA
     Dosage: AS USED: 25 MG/M2  UNIT DOSE: 50 MG
     Route: 042
     Dates: start: 20080927, end: 20080930
  2. ALKERAN [Concomitant]
     Indication: ACUTE MYELOID LEUKAEMIA
     Dosage: AS USED: 70 MG/M2
     Route: 042
     Dates: start: 20080929, end: 20080930
  3. CYLOCIDE [Concomitant]
     Indication: STEM CELL TRANSPLANT
     Dosage: AS USED: 100 MG/M2
     Route: 042
     Dates: start: 20080925, end: 20081001
  4. METHOTREXATE [Concomitant]
     Dosage: AS USED: 15 MG
     Route: 042
     Dates: start: 20081004, end: 20081004
  5. METHOTREXATE [Concomitant]
     Dosage: AS USED: 10 MG
     Route: 042
     Dates: start: 20081006, end: 20081006
  6. METHOTREXATE [Concomitant]
     Dosage: AS USED: 10 MG
     Route: 042
     Dates: start: 20081009, end: 20081009
  7. CONCENTRATED RED CELLS [Concomitant]
     Indication: PACKED RED BLOOD CELL TRANSFUSION
     Route: 042
     Dates: start: 20080929, end: 20090105
  8. PLATELETS [Concomitant]
     Indication: PLATELET TRANSFUSION
     Route: 042
     Dates: start: 20080929, end: 20081209

REACTIONS (3)
  - ACUTE GRAFT VERSUS HOST DISEASE IN INTESTINE [None]
  - ACUTE GRAFT VERSUS HOST DISEASE IN SKIN [None]
  - CYTOMEGALOVIRUS VIRAEMIA [None]
